FAERS Safety Report 9395531 (Version 1)
Quarter: 2013Q3

REPORT INFORMATION
  Report Type: Spontaneous
  Country: CH (occurrence: CH)
  Receive Date: 20130711
  Receipt Date: 20130711
  Transmission Date: 20140515
  Serious: Yes (Other)
  Sender: FDA-Public Use
  Company Number: CH-CUBIST PHARMACEUTICAL, INC.-2013CBST000590

PATIENT
  Sex: 0

DRUGS (3)
  1. CUBICIN [Suspect]
     Indication: ARTHRITIS INFECTIVE
     Dosage: 8 MG/KG, 30 MIN INFUSION
     Route: 042
  2. CUBICIN [Suspect]
     Indication: OFF LABEL USE
  3. RIFAMPICIN [Suspect]
     Indication: ARTHRITIS INFECTIVE
     Dosage: 600 MG, ONCE DAILY
     Route: 048

REACTIONS (2)
  - Ileus [Unknown]
  - Rash [Unknown]
